FAERS Safety Report 4851691-2 (Version None)
Quarter: 2005Q4

REPORT INFORMATION
  Report Type: 
  Country: None (occurrence: None)
  Receive Date: 20051209
  Receipt Date: 20051123
  Transmission Date: 20060501
  Serious: Yes (Hospitalization)
  Sender: FDA-Public Use
  Company Number: DSA_27482_2005

PATIENT
  Age: 24 Year
  Sex: Female

DRUGS (7)
  1. LORAZEPAM [Suspect]
     Dosage: 1.5 MG Q DAY PO
     Route: 048
     Dates: start: 20040420, end: 20040510
  2. LORAZEPAM [Suspect]
     Dosage: 1 MG Q DAY PO
     Route: 048
     Dates: start: 20040511, end: 20040514
  3. LORAZEPAM [Suspect]
     Dosage: 0.5 MG Q DAY PO
     Route: 048
     Dates: start: 20040515
  4. UNSPECIFIED NEUROLEPTIC AGENT [Suspect]
     Dosage: 15 MG Q DAY PO
     Route: 048
     Dates: start: 20040428, end: 20040505
  5. UNSPECIFIED NEUROLEPTIC AGENT [Suspect]
     Dosage: 15 MG Q DAY PO
     Route: 048
     Dates: start: 20040509, end: 20040521
  6. ZELDOX         /GFR/ [Concomitant]
  7. SOLIAN [Concomitant]

REACTIONS (6)
  - BLOOD PRESSURE DECREASED [None]
  - DIZZINESS [None]
  - DRUG INTERACTION [None]
  - FALL [None]
  - SYNCOPE [None]
  - VOMITING [None]
